FAERS Safety Report 9402602 (Version 1)
Quarter: 2013Q3

REPORT INFORMATION
  Report Type: Spontaneous
  Country: US (occurrence: US)
  Receive Date: 20130716
  Receipt Date: 20130716
  Transmission Date: 20140515
  Serious: Yes (Other)
  Sender: FDA-Public Use
  Company Number: US-BAYER-2013-084380

PATIENT
  Age: 20 Year
  Sex: Female
  Weight: 54 kg

DRUGS (1)
  1. ALEVE TABLET [Suspect]
     Dosage: 16 DF, ONCE
     Route: 048
     Dates: start: 20130708, end: 20130708

REACTIONS (1)
  - Overdose [None]
